FAERS Safety Report 14174485 (Version 1)
Quarter: 2017Q4

REPORT INFORMATION
  Report Type: Report from Study
  Country: HU (occurrence: HU)
  Receive Date: 20171109
  Receipt Date: 20171109
  Transmission Date: 20180321
  Serious: Yes (Hospitalization, Other)
  Sender: FDA-Public Use
  Company Number: HU-B.I. PHARMACEUTICALS,INC./RIDGEFIELD-2017-BI-011510

PATIENT
  Age: 47 Year
  Sex: Male

DRUGS (1)
  1. NINTEDANIB [Suspect]
     Active Substance: NINTEDANIB
     Indication: IDIOPATHIC PULMONARY FIBROSIS
     Route: 065
     Dates: start: 201511, end: 201710

REACTIONS (7)
  - Cardiac failure [Unknown]
  - Dyspnoea [Unknown]
  - Renal failure [Recovered/Resolved with Sequelae]
  - Haemoptysis [Unknown]
  - Diarrhoea [Unknown]
  - Hepatic failure [Recovered/Resolved with Sequelae]
  - Hepatic enzyme increased [Unknown]
